FAERS Safety Report 10877732 (Version 1)
Quarter: 2015Q1

REPORT INFORMATION
  Report Type: Spontaneous
  Country: US (occurrence: US)
  Receive Date: 20150302
  Receipt Date: 20150302
  Transmission Date: 20150721
  Serious: Yes (Hospitalization)
  Sender: FDA-Public Use
  Company Number: US-BEH-2015049130

PATIENT
  Sex: Female
  Weight: 99 kg

DRUGS (42)
  1. PRIVIGEN [Suspect]
     Active Substance: HUMAN IMMUNOGLOBULIN G
     Indication: SYSTEMIC LUPUS ERYTHEMATOSUS
     Route: 042
  2. ISORBIDE [Concomitant]
     Active Substance: ISOSORBIDE
  3. DOXYCYCLINE. [Concomitant]
     Active Substance: DOXYCYCLINE
  4. AUGMENTIN [Concomitant]
     Active Substance: AMOXICILLIN\CLAVULANATE POTASSIUM
  5. ALBUTEROL. [Concomitant]
     Active Substance: ALBUTEROL
  6. MAGNESIUM [Concomitant]
     Active Substance: MAGNESIUM
  7. CALCIUM [Concomitant]
     Active Substance: CALCIUM
  8. HUMALOG [Concomitant]
     Active Substance: INSULIN LISPRO
  9. TRAZODONE [Concomitant]
     Active Substance: TRAZODONE HYDROCHLORIDE
  10. ROCEPHIN [Concomitant]
     Active Substance: CEFTRIAXONE SODIUM
  11. EPIPEN [Concomitant]
     Active Substance: EPINEPHRINE
  12. SPIRIVA [Concomitant]
     Active Substance: TIOTROPIUM BROMIDE MONOHYDRATE
  13. DIOVAN [Concomitant]
     Active Substance: VALSARTAN
  14. PLAQUENIL [Concomitant]
     Active Substance: HYDROXYCHLOROQUINE SULFATE
  15. PROAIR HFA [Concomitant]
     Active Substance: ALBUTEROL SULFATE
  16. VITAMIN D [Concomitant]
     Active Substance: CHOLECALCIFEROL
  17. LOSARTAN [Concomitant]
     Active Substance: LOSARTAN
  18. FOLIC ACID. [Concomitant]
     Active Substance: FOLIC ACID
  19. POTASSIUM [Concomitant]
     Active Substance: POTASSIUM
  20. MORPHINE [Concomitant]
     Active Substance: MORPHINE
  21. MIRALAX [Concomitant]
     Active Substance: POLYETHYLENE GLYCOL 3350
  22. SODIUM CHLORIDE. [Concomitant]
     Active Substance: SODIUM CHLORIDE
  23. PRILOSEC [Concomitant]
     Active Substance: OMEPRAZOLE MAGNESIUM
  24. PRIVIGEN [Suspect]
     Active Substance: HUMAN IMMUNOGLOBULIN G
     Route: 042
  25. LYRICA [Concomitant]
     Active Substance: PREGABALIN
  26. LANTUS [Concomitant]
     Active Substance: INSULIN GLARGINE
  27. CHLORTHALIDONE. [Concomitant]
     Active Substance: CHLORTHALIDONE
  28. SALAGEN [Concomitant]
     Active Substance: PILOCARPINE HYDROCHLORIDE
  29. METOPROLOL [Concomitant]
     Active Substance: METOPROLOL
  30. MYCOPHENOLATE [Concomitant]
     Active Substance: MYCOPHENOLIC ACID
  31. IBUPROFEN. [Concomitant]
     Active Substance: IBUPROFEN
  32. PERCOCET [Concomitant]
     Active Substance: ACETAMINOPHEN\OXYCODONE HYDROCHLORIDE
  33. LEVOXYL [Concomitant]
     Active Substance: LEVOTHYROXINE SODIUM
  34. PREDNISONE. [Concomitant]
     Active Substance: PREDNISONE
  35. ACETAMINOPHEN. [Concomitant]
     Active Substance: ACETAMINOPHEN
  36. DIPHENHYDRAMINE [Concomitant]
     Active Substance: DIPHENHYDRAMINE
  37. PRAVASTATIN [Concomitant]
     Active Substance: PRAVASTATIN\PRAVASTATIN SODIUM
  38. ADVAIR HFA [Concomitant]
     Active Substance: FLUTICASONE PROPIONATE\SALMETEROL XINAFOATE
  39. FLEXERIL [Concomitant]
     Active Substance: CYCLOBENZAPRINE HYDROCHLORIDE
  40. TECFIDERA [Concomitant]
     Active Substance: DIMETHYL FUMARATE
  41. NITROSTAT [Concomitant]
     Active Substance: NITROGLYCERIN
  42. VITAMIN B12 [Concomitant]
     Active Substance: CYANOCOBALAMIN

REACTIONS (2)
  - Thoracic vertebral fracture [Unknown]
  - Upper respiratory tract infection [Unknown]
